FAERS Safety Report 11855272 (Version 3)
Quarter: 2016Q1

REPORT INFORMATION
  Report Type: Report from Study
  Country: AT (occurrence: AT)
  Receive Date: 20151221
  Receipt Date: 20160316
  Transmission Date: 20160526
  Serious: Yes (Hospitalization, Other)
  Sender: FDA-Public Use
  Company Number: PHHY2013AT171568

PATIENT
  Age: 53 Year
  Sex: Male
  Weight: 98 kg

DRUGS (6)
  1. VOTRIENT [Suspect]
     Active Substance: PAZOPANIB HYDROCHLORIDE
     Dosage: 800 MG, UNK
     Route: 065
     Dates: start: 20130506, end: 20150530
  2. VOTRIENT [Suspect]
     Active Substance: PAZOPANIB HYDROCHLORIDE
     Indication: RENAL CELL CARCINOMA
     Dosage: UNK
     Route: 065
     Dates: start: 201304
  3. VOTRIENT [Suspect]
     Active Substance: PAZOPANIB HYDROCHLORIDE
     Dosage: 800 MG, QD
     Route: 065
     Dates: start: 20130324
  4. AFINITOR [Suspect]
     Active Substance: EVEROLIMUS
     Indication: RENAL CELL CARCINOMA
     Dosage: 10 MG, QD
     Route: 048
     Dates: start: 20141216
  5. NEXAVAR [Concomitant]
     Active Substance: SORAFENIB
     Indication: PRODUCT USED FOR UNKNOWN INDICATION
     Dosage: UNK
     Route: 065
     Dates: start: 201402
  6. NEXAVAR [Concomitant]
     Active Substance: SORAFENIB
     Dosage: ALTERNATIVELY AT 400/800 MG DOSE

REACTIONS (25)
  - Renal failure [Unknown]
  - Cholelithiasis [Unknown]
  - Lip ulceration [Unknown]
  - Breath sounds [Unknown]
  - Cheilitis [Unknown]
  - Anal fistula [Unknown]
  - Pain [Unknown]
  - Mucosal inflammation [Recovered/Resolved]
  - Laryngeal oedema [Unknown]
  - Neutropenia [Unknown]
  - Necrotising fasciitis [Recovered/Resolved]
  - Pubis fracture [Unknown]
  - Tongue ulceration [Unknown]
  - Oedema mucosal [Unknown]
  - Diarrhoea [Unknown]
  - Dyspnoea [Unknown]
  - Laryngitis [Unknown]
  - Candida infection [Recovering/Resolving]
  - Stomatitis [Unknown]
  - Pneumonia [Recovered/Resolved]
  - Malignant neoplasm progression [Unknown]
  - Body temperature increased [Unknown]
  - Night sweats [Unknown]
  - Hilar lymphadenopathy [Unknown]
  - Productive cough [Unknown]

NARRATIVE: CASE EVENT DATE: 20131208
